FAERS Safety Report 5460771-2 (Version None)
Quarter: 2007Q3

REPORT INFORMATION
  Report Type: 
  Country: None (occurrence: None)
  Receive Date: 20070918
  Receipt Date: 20070904
  Transmission Date: 20080115
  Serious: Yes (Other)
  Sender: FDA-Public Use
  Company Number: 161018ISR

PATIENT
  Age: 41 Year
  Sex: Female

DRUGS (2)
  1. LEVOTHYROXINE SODIUM [Suspect]
     Indication: HYPOTHYROIDISM
     Dosage: (50 MCG) ORAL
     Route: 048
     Dates: start: 20060301
  2. PFIZER CHAMPIX (VARENICLINE TARTARATE) [Suspect]
     Dosage: 2 MG (1 MG, 2 IN 1 D) ORAL
     Route: 048
     Dates: start: 20070710, end: 20070803

REACTIONS (7)
  - ABDOMINAL DISTENSION [None]
  - AGGRESSION [None]
  - DRUG INTERACTION [None]
  - HEADACHE [None]
  - HOT FLUSH [None]
  - IRRITABILITY [None]
  - NAUSEA [None]
